FAERS Safety Report 8351994 (Version 2)
Quarter: 2012Q4

REPORT INFORMATION
  Report Type: 
  Country: US (occurrence: US)
  Receive Date: 20120124
  Receipt Date: 20121226
  Transmission Date: 20130627
  Serious: Yes (Death, Other)
  Sender: FDA-Public Use
  Company Number: US-ELI_LILLY_AND_COMPANY-US201201006610

PATIENT
  Age: 63 Year
  Sex: Male

DRUGS (3)
  1. BYETTA [Suspect]
     Dosage: UNK
     Dates: start: 2007, end: 20090119
  2. ANTIHYPERTENSIVES [Concomitant]
  3. AVANDIA [Concomitant]

REACTIONS (3)
  - Hepatorenal syndrome [Fatal]
  - Pancreatic carcinoma [Not Recovered/Not Resolved]
  - Metastases to liver [Not Recovered/Not Resolved]
